FAERS Safety Report 7027295-2 (Version None)
Quarter: 2010Q4

REPORT INFORMATION
  Report Type: 
  Country: None (occurrence: None)
  Receive Date: 20101004
  Receipt Date: 20100923
  Transmission Date: 20110411
  Serious: Yes (Other)
  Sender: FDA-Public Use
  Company Number: US-PFIZER INC-2010096900

PATIENT
  Sex: Female
  Weight: 104.31 kg

DRUGS (15)
  1. CHANTIX [Suspect]
     Indication: SMOKING CESSATION THERAPY
     Dosage: 0.5 MG, 1X/DAY
     Route: 048
     Dates: start: 20070101, end: 20070101
  2. CHANTIX [Suspect]
     Dosage: 0.5 MG, 1X/DAY
     Route: 048
     Dates: start: 20090101, end: 20090101
  3. CHANTIX [Suspect]
     Dosage: 0.5 MG, 1X/DAY
     Route: 048
     Dates: start: 20100809, end: 20100801
  4. CHANTIX [Suspect]
     Dosage: 0.5 MG, 2X/DAY
     Route: 048
     Dates: start: 20100801, end: 20100801
  5. CHANTIX [Suspect]
     Dosage: 1 MG, 2X/DAY
     Route: 048
     Dates: start: 20100801, end: 20100922
  6. LAMICTAL [Concomitant]
     Indication: BIPOLAR DISORDER
     Dosage: 200 MG, 2X/DAY
  7. PROVIGIL [Concomitant]
     Indication: ATTENTION DEFICIT/HYPERACTIVITY DISORDER
     Dosage: 200 MG, 2X/DAY
  8. FLUOXETINE [Concomitant]
     Indication: DEPRESSION
     Dosage: 20 MG, 1X/DAY
  9. NEXIUM [Concomitant]
     Indication: GASTROOESOPHAGEAL REFLUX DISEASE
     Dosage: UNK
  10. AMBIEN [Concomitant]
     Indication: SLEEP DISORDER
     Dosage: UNK
  11. TEMAZEPAM [Concomitant]
     Indication: SLEEP DISORDER
     Dosage: UNK
  12. MONTELUKAST [Concomitant]
     Indication: CHRONIC OBSTRUCTIVE PULMONARY DISEASE
     Dosage: 10 MG, 1X/DAY
  13. VITAMIN B3 (NICOTINIC ACID AMIDE) [Concomitant]
     Dosage: 5000 IU, UNK
  14. IBUPROFEN [Concomitant]
     Indication: WHITE BLOOD CELL COUNT INCREASED
     Dosage: 800 MG, 3X/DAY
  15. CLARITIN [Concomitant]
     Dosage: 10 MG, 1X/DAY

REACTIONS (14)
  - ABNORMAL BEHAVIOUR [None]
  - BRUXISM [None]
  - DEPRESSION [None]
  - DYSGEUSIA [None]
  - FATIGUE [None]
  - FEELING ABNORMAL [None]
  - IRRITABILITY [None]
  - NAUSEA [None]
  - NERVOUSNESS [None]
  - NO THERAPEUTIC RESPONSE [None]
  - OBSESSIVE THOUGHTS [None]
  - PAIN IN JAW [None]
  - WHITE BLOOD CELL COUNT DECREASED [None]
  - WITHDRAWAL SYNDROME [None]
